FAERS Safety Report 24191293 (Version 1)
Quarter: 2024Q3

REPORT INFORMATION
  Report Type: Spontaneous
  Country: US (occurrence: US)
  Receive Date: 20240808
  Receipt Date: 20240808
  Transmission Date: 20241017
  Serious: No
  Sender: BRISTOL MYERS SQUIBB
  Company Number: US-BRISTOL-MYERS SQUIBB COMPANY-2024-124608

PATIENT
  Age: 54 Year
  Sex: Female

DRUGS (2)
  1. SPRYCEL [Suspect]
     Active Substance: DASATINIB
     Indication: Myeloid leukaemia
     Route: 048
     Dates: start: 202009
  2. SPRYCEL [Suspect]
     Active Substance: DASATINIB
     Dosage: STRENGTH - 80MG
     Route: 048
     Dates: start: 202009

REACTIONS (1)
  - Pain [Unknown]
